FAERS Safety Report 8819876 (Version 5)
Quarter: 2013Q3

REPORT INFORMATION
  Report Type: Report from Study
  Country: AU (occurrence: AU)
  Receive Date: 20121001
  Receipt Date: 20130905
  Transmission Date: 20140515
  Serious: Yes (Hospitalization)
  Sender: FDA-Public Use
  Company Number: AU-ABBOTT-12P-008-0986704-00

PATIENT
  Age: 32 Year
  Sex: Female
  Weight: 45 kg

DRUGS (22)
  1. HUMIRA [Suspect]
     Indication: CROHN^S DISEASE
     Route: 058
     Dates: start: 20080108
  2. HUMIRA [Suspect]
     Dates: start: 20090422
  3. HUMIRA [Suspect]
     Dates: start: 20091216
  4. HUMIRA [Suspect]
     Dates: start: 20101112, end: 20110803
  5. HUMIRA [Suspect]
     Route: 058
     Dates: start: 20110831, end: 20121029
  6. HUMIRA [Suspect]
     Route: 058
     Dates: start: 20130620
  7. MESALAZINE [Concomitant]
     Indication: CROHN^S DISEASE
     Dates: start: 200511
  8. NOVASONE [Concomitant]
     Indication: PSORIASIS
     Dosage: APPLY AT NIGHT TO FEET
     Dates: start: 200802
  9. PREDNISOLONE [Concomitant]
     Indication: CROHN^S DISEASE
     Dates: start: 20090712, end: 200909
  10. PREDNISOLONE [Concomitant]
     Indication: CROHN^S DISEASE
     Dosage: 40 MG TAPERING DOSE
     Dates: start: 20111115, end: 20120805
  11. PREDNISOLONE [Concomitant]
     Indication: CROHN^S DISEASE
     Dosage: 40 MG REDUCING REGIME
     Dates: start: 20120809
  12. PREDNISOLONE [Concomitant]
     Dates: start: 20121112
  13. HYDROCORTISONE [Concomitant]
     Indication: CROHN^S DISEASE
     Route: 042
     Dates: start: 20090708, end: 20090715
  14. HYDROCORTISONE [Concomitant]
     Indication: CROHN^S DISEASE
     Route: 042
     Dates: start: 20111111, end: 20111114
  15. HYDROCORTISONE [Concomitant]
     Route: 042
     Dates: start: 20120806, end: 20120809
  16. HYDROCORTISONE [Concomitant]
     Route: 042
     Dates: start: 20120809, end: 20120810
  17. METRONIDAZOLE [Concomitant]
     Indication: CLOSTRIDIUM DIFFICILE COLITIS
     Dates: start: 20090827, end: 20090903
  18. METRONIDAZOLE [Concomitant]
     Indication: INFECTION
     Dates: start: 20100503, end: 20100507
  19. METRONIDAZOLE [Concomitant]
     Indication: GASTROINTESTINAL INFECTION
     Dates: start: 20120807, end: 20120809
  20. PANADOL [Concomitant]
     Indication: PAIN
     Dosage: 4 TIMES A DAY AS NEEDED
     Dates: start: 20100429, end: 20121030
  21. PRENATAL VITAMINS [Concomitant]
     Indication: VITAMIN SUPPLEMENTATION
     Dates: start: 201110
  22. ERYTHROMYCIN [Concomitant]
     Indication: ANAL ABSCESS
     Dates: start: 20120411

REACTIONS (1)
  - Crohn^s disease [Recovered/Resolved]
